FAERS Safety Report 9283777 (Version 1)
Quarter: 2013Q2

REPORT INFORMATION
  Report Type: Report from Study
  Country: CA (occurrence: CA)
  Receive Date: 20130510
  Receipt Date: 20130510
  Transmission Date: 20140414
  Serious: Yes (Other)
  Sender: FDA-Public Use
  Company Number: CA-JNJFOC-20130503047

PATIENT
  Sex: Female
  Weight: 94.7 kg

DRUGS (6)
  1. REMICADE [Suspect]
     Indication: COLITIS ULCERATIVE
     Route: 042
     Dates: start: 20090526
  2. CELEXA [Concomitant]
     Route: 065
  3. ADVAIR [Concomitant]
     Route: 065
  4. VENTOLIN [Concomitant]
     Route: 065
  5. PANTOLOC [Concomitant]
     Route: 065
  6. SINGULAIR [Concomitant]
     Route: 065

REACTIONS (1)
  - Ovarian cyst [Not Recovered/Not Resolved]
